FAERS Safety Report 14236667 (Version 2)
Quarter: 2018Q1

REPORT INFORMATION
  Report Type: Spontaneous
  Country: US (occurrence: US)
  Receive Date: 20171129
  Receipt Date: 20180207
  Transmission Date: 20180508
  Serious: No
  Sender: FDA-Public Use
  Company Number: US-LUNDBECK-DKLU2040306

PATIENT
  Sex: Female

DRUGS (3)
  1. NORTHERA [Suspect]
     Active Substance: DROXIDOPA
     Route: 065
     Dates: start: 201711, end: 201711
  2. NORTHERA [Suspect]
     Active Substance: DROXIDOPA
     Route: 065
     Dates: start: 2017
  3. NORTHERA [Suspect]
     Active Substance: DROXIDOPA
     Indication: PRODUCT USED FOR UNKNOWN INDICATION
     Dosage: SCHEDULE A
     Route: 048
     Dates: start: 20171028

REACTIONS (6)
  - Dizziness [Unknown]
  - Feeling abnormal [Unknown]
  - Sluggishness [Unknown]
  - Fatigue [Unknown]
  - Adverse drug reaction [Unknown]
  - Dyspnoea [Unknown]
